FAERS Safety Report 8390656-3 (Version None)
Quarter: 2012Q2

REPORT INFORMATION
  Report Type: 
  Country: None (occurrence: None)
  Receive Date: 20120529
  Receipt Date: 20120528
  Transmission Date: 20120825
  Serious: Yes (Death, Hospitalization, Other)
  Sender: FDA-Public Use
  Company Number: PHFR2012IE001376

PATIENT
  Sex: Female

DRUGS (6)
  1. HYDROCORTISONE [Concomitant]
  2. CYCLIZINE [Concomitant]
     Dosage: 50 MG, DAILY
     Route: 042
  3. HYOSCINE HBR HYT [Concomitant]
     Dosage: 800 MG, DAILY
     Route: 042
  4. PIPERACILLIN AND TAZOBACTAM [Concomitant]
     Dosage: 13.5 MG, DAILY
     Route: 042
  5. CLOZARIL [Suspect]
     Indication: SCHIZOPHRENIA
     Dosage: 400 MG, DAILY
     Route: 048
     Dates: start: 20101207
  6. MORPHINE [Concomitant]
     Dosage: 12.5 MG, DAILY
     Route: 042

REACTIONS (6)
  - DEATH [None]
  - CLOSTRIDIAL INFECTION [None]
  - GENERAL PHYSICAL HEALTH DETERIORATION [None]
  - MALAISE [None]
  - INTESTINAL OBSTRUCTION [None]
  - INTESTINAL PERFORATION [None]
